FAERS Safety Report 12511266 (Version 2)
Quarter: 2016Q4

REPORT INFORMATION
  Report Type: Spontaneous
  Country: US (occurrence: US)
  Receive Date: 20160629
  Receipt Date: 20161103
  Transmission Date: 20170207
  Serious: Yes (Other)
  Sender: FDA-Public Use
  Company Number: US-BRISTOL-MYERS SQUIBB COMPANY-BMS-2016-053319

PATIENT
  Sex: Female

DRUGS (1)
  1. YERVOY [Suspect]
     Active Substance: IPILIMUMAB
     Indication: MALIGNANT MELANOMA
     Dosage: 900 MG, UNK
     Route: 065

REACTIONS (5)
  - Daydreaming [Unknown]
  - Pruritus [Unknown]
  - Diarrhoea [Unknown]
  - Faeces soft [Unknown]
  - Lethargy [Unknown]
